FAERS Safety Report 5224304-8 (Version None)
Quarter: 2007Q1

REPORT INFORMATION
  Report Type: 
  Country: None (occurrence: None)
  Receive Date: 20070130
  Receipt Date: 20070124
  Transmission Date: 20070707
  Serious: Yes (Other)
  Sender: FDA-Public Use
  Company Number: BR-BOEHRINGER INGELHEIM PHARMACEUTICALS, INC.-2007-BP-01161BR

PATIENT
  Age: 75 Year
  Sex: Female

DRUGS (4)
  1. ATENSINA [Suspect]
     Indication: HYPERTENSION
     Route: 048
  2. MICARDIS HCT [Suspect]
     Indication: HYPERTENSION
     Route: 048
     Dates: start: 20060101
  3. MICARDIS [Suspect]
     Indication: HYPERTENSION
     Route: 048
     Dates: start: 20060101
  4. RIVOTRIL [Concomitant]
     Indication: INSOMNIA

REACTIONS (7)
  - BLOOD PRESSURE INCREASED [None]
  - BLOOD URIC ACID INCREASED [None]
  - DIZZINESS [None]
  - EYE IRRITATION [None]
  - EYE SWELLING [None]
  - HYPOAESTHESIA [None]
  - MUSCLE SPASMS [None]
